FAERS Safety Report 13870234 (Version 1)
Quarter: 2017Q3

REPORT INFORMATION
  Report Type: Spontaneous
  Country: None (occurrence: CA)
  Receive Date: 20170815
  Receipt Date: 20170815
  Transmission Date: 20171127
  Serious: Yes (Death)
  Sender: FDA-Public Use
  Company Number: CA-MERZ NORTH AMERICA, INC.-17MRZ-00241

PATIENT
  Age: 9 Year
  Sex: Male

DRUGS (5)
  1. APO-CLONAZEPAM [Suspect]
     Active Substance: CLONAZEPAM
     Route: 048
  2. APO-VALPROIC (VALPROIC ACID) [Suspect]
     Active Substance: VALPROIC ACID
     Indication: CEREBRAL PALSY
  3. XEOMIN [Suspect]
     Active Substance: INCOBOTULINUMTOXINA
     Indication: QUADRIPLEGIA
  4. XEOMIN [Suspect]
     Active Substance: INCOBOTULINUMTOXINA
     Indication: MENINGOENCEPHALITIS HERPETIC
  5. XEOMIN [Suspect]
     Active Substance: INCOBOTULINUMTOXINA
     Indication: SEDATION

REACTIONS (2)
  - Respiratory failure [Fatal]
  - Lethargy [Fatal]
